FAERS Safety Report 18269768 (Version 1)
Quarter: 2020Q3

REPORT INFORMATION
  Report Type: Spontaneous
  Country: US (occurrence: US)
  Receive Date: 20200915
  Receipt Date: 20200915
  Transmission Date: 20201103
  Serious: Yes (Hospitalization)
  Sender: FDA-Public Use
  Company Number: US-MYLANLABS-2020M1078431

PATIENT
  Age: 26 Year
  Sex: Female

DRUGS (3)
  1. MILRINONE [Suspect]
     Active Substance: MILRINONE
     Indication: PULMONARY HYPERTENSION
     Dosage: DOSE: 0.5 MICROG/KG/MIN
     Route: 042
  2. DOBUTAMINE [Concomitant]
     Active Substance: DOBUTAMINE HYDROCHLORIDE
     Indication: PULMONARY HYPERTENSION
     Dosage: DOSE: 2 MICROG/KG/MIN
     Route: 042
  3. GLYCERYL TRINITRATE [Suspect]
     Active Substance: NITROGLYCERIN
     Indication: PULMONARY HYPERTENSION
     Dosage: DOSE: 150 MICROG/MIN
     Route: 042

REACTIONS (1)
  - Drug ineffective [Unknown]
